FAERS Safety Report 7313504-9 (Version None)
Quarter: 2011Q1

REPORT INFORMATION
  Report Type: 
  Country: None (occurrence: None)
  Receive Date: 20110225
  Receipt Date: 20110211
  Transmission Date: 20110831
  Serious: Yes (Other)
  Sender: FDA-Public Use
  Company Number: US-RANBAXY-2011RR-41851

PATIENT
  Sex: Female
  Weight: 77 kg

DRUGS (2)
  1. IBUPROFEN [Suspect]
     Dosage: 1 DF, Q4H
     Route: 048
     Dates: start: 20110202, end: 20110203
  2. LEVAQUIN [Suspect]
     Indication: INFECTION
     Dosage: 500 MG, QD
     Route: 048
     Dates: start: 20110203, end: 20110203

REACTIONS (3)
  - NAUSEA [None]
  - SYNCOPE [None]
  - ADVERSE DRUG REACTION [None]
